FAERS Safety Report 4596632-0 (Version None)
Quarter: 2005Q1

REPORT INFORMATION
  Report Type: 
  Country: None (occurrence: None)
  Receive Date: 20050228
  Receipt Date: 20040616
  Transmission Date: 20050727
  Serious: Yes (Death, Hospitalization)
  Sender: FDA-Public Use
  Company Number: 8264

PATIENT
  Age: 75 Year
  Sex: Female

DRUGS (4)
  1. METHOTREXATE [Suspect]
     Indication: RHEUMATOID ARTHRITIS
     Dosage: 7.5 MG WEEKL
     Dates: end: 19930907
  2. PREDNISOLONE [Concomitant]
  3. BUCILLMINE [Concomitant]
  4. SULINDAC [Concomitant]

REACTIONS (4)
  - HEPATIC ENCEPHALOPATHY [None]
  - HEPATIC NECROSIS [None]
  - HEPATITIS FULMINANT [None]
  - LYMPHOCYTE STIMULATION TEST POSITIVE [None]
